FAERS Safety Report 23163153 (Version 1)
Quarter: 2023Q4

REPORT INFORMATION
  Report Type: Spontaneous
  Country: US (occurrence: US)
  Receive Date: 20231109
  Receipt Date: 20231109
  Transmission Date: 20240109
  Serious: No
  Sender: FDA-Public Use
  Company Number: US-INSMED, INC.-2022-03180-US

PATIENT
  Age: 72 Year
  Sex: Male

DRUGS (2)
  1. ARIKAYCE [Suspect]
     Active Substance: AMIKACIN
     Indication: Mycobacterium avium complex infection
     Dosage: UNK
     Route: 055
  2. ARIKAYCE [Suspect]
     Active Substance: AMIKACIN
     Dosage: UNK
     Route: 055

REACTIONS (2)
  - Urticaria [Unknown]
  - Pruritus [Unknown]
